FAERS Safety Report 14756297 (Version 4)
Quarter: 2018Q2

REPORT INFORMATION
  Report Type: Spontaneous
  Country: US (occurrence: US)
  Receive Date: 20180413
  Receipt Date: 20180418
  Transmission Date: 20180711
  Serious: No
  Sender: FDA-Public Use
  Company Number: US-ACS-000887

PATIENT
  Age: 25 Year
  Sex: Female

DRUGS (1)
  1. CEFAZOLIN FOR INJECTION 1G ACS DOBFAR [Suspect]
     Active Substance: CEFAZOLIN
     Route: 065

REACTIONS (3)
  - Eye pain [Recovered/Resolved]
  - Eye irritation [Recovered/Resolved]
  - Accidental exposure to product [Unknown]
